FAERS Safety Report 9171699 (Version 2)
Quarter: 2013Q2

REPORT INFORMATION
  Report Type: Spontaneous
  Country: US (occurrence: None)
  Receive Date: 20130318
  Receipt Date: 20130401
  Transmission Date: 20140414
  Serious: Yes (Death, Hospitalization)
  Sender: FDA-Public Use
  Company Number: 2013US-004618

PATIENT
  Age: 56 Year
  Sex: Male
  Weight: 114 kg

DRUGS (43)
  1. OMONTYS (PEGINESATIDE) SOLUTION FOR INJECTION [Suspect]
     Indication: NEPHROGENIC ANAEMIA
     Route: 042
     Dates: start: 20121110, end: 20121110
  2. CELEXA (CITALOPRAM HYDROBROMIDE) [Concomitant]
  3. RESTORIL (CHLORMEZANONE) [Concomitant]
  4. LISINOPRIL (LISINOPRIL) [Concomitant]
  5. ACTOSE (PIOGLITAZONE HYDROCHLORIDE) [Concomitant]
  6. HYDROCHLOROTHIAZIDE (HYDROCHLOROTHIAZIDE) [Concomitant]
  7. TIZANIDINE (TIZANIDINE) [Concomitant]
  8. EYE DROPS (TETRYZOLINE HYDROCHLORIDE) [Concomitant]
  9. METHADONE (METHADONE) [Concomitant]
  10. HYDROCODONE/APAP (HYDROCODONE BITARTRATE, PARACETAMOL) [Concomitant]
  11. TRAMADOL (TRAMADOL) [Concomitant]
  12. PLAVIX (CLOPIDOGREL BISULFATE) [Concomitant]
  13. AVANDIA (ROSIGLITAZONE MALEATE) [Concomitant]
  14. LIPITOR (ATORVASTATIN CALCIUM) [Concomitant]
  15. FERROUS SULFATE (FERROUS SULFATE) [Concomitant]
  16. MICARDIS (TELMISARTAN) [Concomitant]
  17. BYSTOLIC (NEBIVOLOL HYDROCHLORIDE) [Concomitant]
  18. NITROLINGUAL (GLYCERYL TRINITRATE) [Concomitant]
  19. PHOSLO (CALCIUM ACETATE) [Concomitant]
  20. AUGMENTIN (AMOXICILLIN SODIUM, CLAVULANATE POTASSIUM) [Concomitant]
  21. BENADRYL (DIPHENHYDRAMINE HYDROCHLORIDE) [Concomitant]
  22. LYRICA (PREGABALIN) [Concomitant]
  23. TRAZODONE (TRAZODONE) [Concomitant]
  24. NEURONTIN (GABAPENTIN) [Concomitant]
  25. COREG (CARVEDILOL) [Concomitant]
  26. NIFEDIPINE (NIFEDIPINE) [Concomitant]
  27. DIOVAN (VALSARTAN) [Concomitant]
  28. LASIX (FUROSEMIDE) [Concomitant]
  29. QVAR (BECLOMETASONE DIPROPIONATE) [Concomitant]
  30. COLACE [Concomitant]
  31. LOSARTAN (LOSARTAN) [Concomitant]
  32. ACTOS (PIOGLITAZONE HYDROCHLORIDE) [Concomitant]
  33. CALCIUM ACETATE (CALCIUM ACETATE) [Concomitant]
  34. EPOGEN (EPOETIN ALFA) [Concomitant]
  35. ZITHROMAX (AZITHROMYCIN) [Concomitant]
  36. NEPRO CARB STEADY [Concomitant]
  37. OMNICEF (CEFOTAXIME SODIUM) [Concomitant]
  38. MEDROL (METHYLPREDNISOLONE) [Concomitant]
  39. ENGERIX B VACCIN (HEPATITIS B VACCINE) [Concomitant]
  40. HEPARIN (HEPARIN) [Concomitant]
  41. GLIPIZIDE (GLIPIZIDE) [Concomitant]
  42. ASPIRIN (ACETYLSALICYLIC ACID) [Concomitant]
  43. RENAGEL (SEVELAMER) [Concomitant]

REACTIONS (26)
  - Cardiac arrest [None]
  - Blood pressure decreased [None]
  - Oxygen saturation decreased [None]
  - Hypopnoea [None]
  - Pallor [None]
  - Cold sweat [None]
  - Malaise [None]
  - Encephalopathy [None]
  - Unresponsive to stimuli [None]
  - Acute respiratory failure [None]
  - Pneumonia aspiration [None]
  - Fluid overload [None]
  - Pulmonary oedema [None]
  - Cardio-respiratory arrest [None]
  - Pulseless electrical activity [None]
  - Haemoglobin decreased [None]
  - Respiratory acidosis [None]
  - Pleural effusion [None]
  - Cardiomegaly [None]
  - Bacterial test positive [None]
  - Glucose urine present [None]
  - White blood cells urine positive [None]
  - Red blood cells urine positive [None]
  - Protein urine present [None]
  - Atelectasis [None]
  - Electrocardiogram T wave inversion [None]
